FAERS Safety Report 4556890-5 (Version None)
Quarter: 2005Q1

REPORT INFORMATION
  Report Type: 
  Country: None (occurrence: None)
  Receive Date: 20050118
  Receipt Date: 20050104
  Transmission Date: 20050727
  Serious: Yes (Hospitalization)
  Sender: FDA-Public Use
  Company Number: 2005004080

PATIENT
  Age: 90 Year
  Sex: Female

DRUGS (3)
  1. CELEBREX [Suspect]
     Indication: EYE PAIN
     Dosage: 200 MG (200 MG, 1 IN 1 D), ORAL
     Route: 048
     Dates: start: 20041201, end: 20041212
  2. ACETYLSALICYLIC ACID SRT [Concomitant]
  3. BETA BLOCKING  AGENTS (BETA BLOCKING  AGENTS) [Concomitant]

REACTIONS (5)
  - ARRHYTHMIA [None]
  - ATRIAL FIBRILLATION [None]
  - BRADYCARDIA [None]
  - OVERDOSE [None]
  - PALPITATIONS [None]
